FAERS Safety Report 9614571 (Version 1)
Quarter: 2013Q4

REPORT INFORMATION
  Report Type: Spontaneous
  Country: KW (occurrence: KW)
  Receive Date: 20131011
  Receipt Date: 20131011
  Transmission Date: 20140711
  Serious: Yes (Other)
  Sender: FDA-Public Use
  Company Number: PHHY2013KW113247

PATIENT
  Sex: Female

DRUGS (2)
  1. AFINITOR [Suspect]
     Indication: BREAST CANCER
     Dosage: 10 MG, QD
     Route: 048
     Dates: start: 20130920, end: 20131003
  2. AFINITOR [Suspect]
     Dosage: UNK UKN, UNK

REACTIONS (2)
  - Psychotic disorder [Recovering/Resolving]
  - Depression [Unknown]
